FAERS Safety Report 5253708-2 (Version None)
Quarter: 2007Q1

REPORT INFORMATION
  Report Type: 
  Country: None (occurrence: None)
  Receive Date: 20070226
  Receipt Date: 20070215
  Transmission Date: 20070707
  Serious: Yes (Other)
  Sender: FDA-Public Use
  Company Number: 236802

PATIENT
  Age: 63 Year
  Sex: Female

DRUGS (2)
  1. RAPTIVA [Suspect]
     Indication: PSORIASIS
     Dosage: 0.8 MG, 1/WEEK, SUBCUTANEOUS
     Route: 058
     Dates: start: 20070104
  2. TYLENOL (CAPLET) [Concomitant]

REACTIONS (4)
  - BLOOD CHOLESTEROL INCREASED [None]
  - HYPERTENSION [None]
  - JOINT SWELLING [None]
  - SKIN EXFOLIATION [None]
